FAERS Safety Report 25514866 (Version 1)
Quarter: 2025Q3

REPORT INFORMATION
  Report Type: Spontaneous
  Country: US (occurrence: US)
  Receive Date: 20250703
  Receipt Date: 20250703
  Transmission Date: 20251021
  Serious: No
  Sender: RADIUS PHARM
  Company Number: US-RADIUS HEALTH, INC.-2023US006154

PATIENT
  Sex: Female

DRUGS (1)
  1. TYMLOS [Suspect]
     Active Substance: ABALOPARATIDE
     Indication: Rheumatoid arthritis
     Route: 058
     Dates: start: 202307

REACTIONS (4)
  - Condition aggravated [Unknown]
  - Arthralgia [Unknown]
  - Memory impairment [Unknown]
  - Joint swelling [None]
